FAERS Safety Report 24543109 (Version 1)
Quarter: 2024Q4

REPORT INFORMATION
  Report Type: Spontaneous
  Country: JP (occurrence: JP)
  Receive Date: 20241024
  Receipt Date: 20241024
  Transmission Date: 20250115
  Serious: Yes (Hospitalization, Other)
  Sender: Vantive US Healthcare
  Company Number: JP-VANTIVE-2024VAN020117

PATIENT
  Age: 64 Year
  Sex: Male
  Weight: 85.2 kg

DRUGS (3)
  1. REGUNEAL LCA [Suspect]
     Active Substance: CALCIUM CHLORIDE\DEXTROSE MONOHYDRATE\HYDROCHLORIC ACID\MAGNESIUM CHLORIDE\SODIUM BICARBONATE\SODIUM
     Dosage: 1800ML, 5 (DETAILS NOT REPORTED)
     Route: 033
  2. EXTRANEAL [Suspect]
     Active Substance: CALCIUM CHLORIDE\ICODEXTRIN\MAGNESIUM CHLORIDE\SODIUM CHLORIDE\SODIUM LACTATE
     Dosage: 1500ML, 1 (DETAILS NOT REPORTED)
     Route: 033
  3. DAPRODUSTAT [Concomitant]
     Active Substance: DAPRODUSTAT
     Dosage: 4MG
     Route: 065

REACTIONS (4)
  - Bacterial translocation [Unknown]
  - Noninfectious peritonitis [Recovered/Resolved]
  - Peritoneal effluent abnormal [Unknown]
  - Diarrhoea [Recovered/Resolved]

NARRATIVE: CASE EVENT DATE: 20240914
